FAERS Safety Report 17755523 (Version 1)
Quarter: 2020Q2

REPORT INFORMATION
  Report Type: Spontaneous
  Country: US (occurrence: US)
  Receive Date: 20200506
  Receipt Date: 20200506
  Transmission Date: 20200714
  Serious: Yes (Other)
  Sender: FDA-Public Use
  Company Number: None

PATIENT
  Age: 52 Year
  Sex: Female
  Weight: 51.3 kg

DRUGS (8)
  1. COQ10 [Concomitant]
     Active Substance: UBIDECARENONE
  2. IRON 65 MG [Concomitant]
  3. CALCIUM [Concomitant]
     Active Substance: CALCIUM
  4. ELIQUIS [Suspect]
     Active Substance: APIXABAN
     Indication: PULMONARY EMBOLISM
     Dosage: ?          QUANTITY:60 TABLET(S);?
     Route: 048
  5. FISH OIL [Concomitant]
     Active Substance: FISH OIL
  6. APIXABAN [Concomitant]
     Active Substance: APIXABAN
  7. CENTRUM SILVER ADULT [Concomitant]
  8. VITAMIN D3 [Concomitant]
     Active Substance: CHOLECALCIFEROL

REACTIONS (5)
  - Dyspnoea [None]
  - Paraesthesia [None]
  - Fatigue [None]
  - Product quality issue [None]
  - Chest discomfort [None]

NARRATIVE: CASE EVENT DATE: 20200409
